FAERS Safety Report 16406271 (Version 1)
Quarter: 2019Q2

REPORT INFORMATION
  Report Type: Spontaneous
  Country: US (occurrence: US)
  Receive Date: 20190607
  Receipt Date: 20190607
  Transmission Date: 20190711
  Serious: No
  Sender: FDA-Public Use
  Company Number: US-ALLERGAN-1853168US

PATIENT
  Sex: Female

DRUGS (1)
  1. VIBERZI [Suspect]
     Active Substance: ELUXADOLINE
     Indication: PRODUCT USED FOR UNKNOWN INDICATION
     Dosage: ACTUAL; TOOK ONE DOSE OF 75 MG
     Route: 065
     Dates: start: 20181109

REACTIONS (1)
  - Contraindicated product prescribed [Unknown]

NARRATIVE: CASE EVENT DATE: 20181109
